FAERS Safety Report 23944706 (Version 1)
Quarter: 2024Q2

REPORT INFORMATION
  Report Type: Spontaneous
  Country: PR (occurrence: PR)
  Receive Date: 20240606
  Receipt Date: 20240606
  Transmission Date: 20240716
  Serious: Yes (Death, Other)
  Sender: FDA-Public Use
  Company Number: PR-BRISTOL-MYERS SQUIBB COMPANY-2024-088857

PATIENT
  Age: 90 Year
  Sex: Male
  Weight: 63.5 kg

DRUGS (5)
  1. POMALYST [Suspect]
     Active Substance: POMALIDOMIDE
     Indication: Plasma cell myeloma
     Route: 048
     Dates: start: 20240525, end: 20240529
  2. PROCRIT [Concomitant]
     Active Substance: ERYTHROPOIETIN
  3. DARZALEX [Concomitant]
     Active Substance: DARATUMUMAB
  4. ZOMETA [Concomitant]
     Active Substance: ZOLEDRONIC ACID
     Route: 042
  5. ISOSORBIDE MONONITRATE [Concomitant]
     Active Substance: ISOSORBIDE MONONITRATE

REACTIONS (2)
  - Acute coronary syndrome [Fatal]
  - Haemoglobin increased [Unknown]
